FAERS Safety Report 8425891-9 (Version None)
Quarter: 2012Q2

REPORT INFORMATION
  Report Type: 
  Country: None (occurrence: None)
  Receive Date: 20120611
  Receipt Date: 20120530
  Transmission Date: 20120825
  Serious: No
  Sender: FDA-Public Use
  Company Number: US-B.I. PHARMACEUTICALS,INC./RIDGEFIELD-2012-BP-12665BP

PATIENT
  Age: 53 Year
  Sex: Female

DRUGS (6)
  1. SPIRIVA [Concomitant]
     Indication: EMPHYSEMA
     Dosage: 18 MCG
     Route: 055
     Dates: start: 20090101
  2. PROVENTIL [Concomitant]
     Indication: EMPHYSEMA
     Route: 055
  3. ADVAIR DISKUS 100/50 [Concomitant]
     Indication: EMPHYSEMA
     Route: 055
  4. COMBIVENT [Suspect]
     Indication: EMPHYSEMA
     Dosage: 10 PUF
     Route: 055
     Dates: start: 19940101, end: 20120401
  5. XANAX [Concomitant]
     Indication: ANXIETY
     Route: 048
  6. ALBUTEROL [Concomitant]
     Indication: EMPHYSEMA
     Route: 055

REACTIONS (2)
  - DYSPNOEA [None]
  - BLISTER [None]
